FAERS Safety Report 25151284 (Version 1)
Quarter: 2025Q2

REPORT INFORMATION
  Report Type: Spontaneous
  Country: US (occurrence: None)
  Receive Date: 20250402
  Receipt Date: 20250402
  Transmission Date: 20250716
  Serious: Yes (Hospitalization)
  Sender: FDA-CTU
  Company Number: None

PATIENT
  Age: 54 Year
  Sex: Male
  Weight: 53.5 kg

DRUGS (5)
  1. RISANKIZUMAB [Suspect]
     Active Substance: RISANKIZUMAB
     Indication: Colitis ulcerative
     Route: 041
     Dates: start: 20250120, end: 20250217
  2. Acetaminophen 975 mg tablets [Concomitant]
     Dates: start: 20250120, end: 20250217
  3. METHYLPREDNISOLONE [Concomitant]
     Active Substance: METHYLPREDNISOLONE
     Dates: start: 20250120, end: 20250217
  4. famotidine 20 mg tablet [Concomitant]
     Dates: start: 20250120, end: 20250217
  5. diphenhydramine 50 mg capsule [Concomitant]
     Dates: start: 20250120, end: 20250217

REACTIONS (9)
  - Liver function test increased [None]
  - Alanine aminotransferase increased [None]
  - Aspartate aminotransferase increased [None]
  - Blood bilirubin increased [None]
  - Blood alkaline phosphatase increased [None]
  - Abdominal pain [None]
  - Ocular icterus [None]
  - Pallor [None]
  - Therapy interrupted [None]

NARRATIVE: CASE EVENT DATE: 20250217
